FAERS Safety Report 12438390 (Version 1)
Quarter: 2016Q2

REPORT INFORMATION
  Report Type: Other
  Country: GB (occurrence: GB)
  Receive Date: 20160606
  Receipt Date: 20160606
  Transmission Date: 20160815
  Serious: Yes (Other)
  Sender: FDA-Public Use
  Company Number: GB-MYLANLABS-2016M1023159

PATIENT

DRUGS (4)
  1. PRO D3 [Concomitant]
     Dosage: UNK
  2. FELODIPINE. [Suspect]
     Active Substance: FELODIPINE
     Dosage: 10 MG, UNK
     Dates: start: 20160429
  3. TRIMETHOPRIM. [Concomitant]
     Active Substance: TRIMETHOPRIM
     Dosage: 200 MG, UNK
  4. BETMIGA [Suspect]
     Active Substance: MIRABEGRON
     Indication: BLADDER DISORDER
     Dosage: 50 MG, QD
     Route: 048
     Dates: start: 20141114, end: 20160507

REACTIONS (7)
  - Pain in extremity [Recovering/Resolving]
  - Dyspnoea [Unknown]
  - Confusional state [Recovered/Resolved]
  - Blood pressure increased [Not Recovered/Not Resolved]
  - Chest pain [Not Recovered/Not Resolved]
  - Drug interaction [Unknown]
  - Dyspepsia [Not Recovered/Not Resolved]

NARRATIVE: CASE EVENT DATE: 20150101
